FAERS Safety Report 8298004-4 (Version None)
Quarter: 2012Q2

REPORT INFORMATION
  Report Type: 
  Country: None (occurrence: None)
  Receive Date: 20120419
  Receipt Date: 20111013
  Transmission Date: 20120825
  Serious: Yes (Hospitalization, Other)
  Sender: FDA-Public Use
  Company Number: US-BAYER-2011-054873

PATIENT
  Age: 29 Year
  Sex: Female
  Weight: 83.9 kg

DRUGS (11)
  1. CHOLESTEROL- AND TRIGLYCERIDE REDUCERS [Concomitant]
  2. YASMIN [Suspect]
     Indication: CONTRACEPTION
     Dosage: UNK
     Route: 048
     Dates: start: 20011101, end: 20071101
  3. RELPAX [Concomitant]
  4. FLUCONAZOLE [Concomitant]
  5. TRICOR [Concomitant]
  6. OXYCODONE HCL AND ACETAMINOPHEN [Concomitant]
  7. DIAZEPAM [Concomitant]
  8. OMEGA 3 FATTY ACIDS [Concomitant]
  9. YAZ [Suspect]
     Indication: CONTRACEPTION
     Dosage: UNK
     Dates: start: 20011101, end: 20071101
  10. CHANTIX [Concomitant]
  11. ZOLPIDEM [Concomitant]

REACTIONS (5)
  - INJURY [None]
  - PAIN [None]
  - CHOLECYSTITIS CHRONIC [None]
  - CHOLECYSTECTOMY [None]
  - PANCREATITIS ACUTE [None]
